FAERS Safety Report 22250970 (Version 1)
Quarter: 2023Q2

REPORT INFORMATION
  Report Type: Report from Study
  Country: MX (occurrence: MX)
  Receive Date: 20230425
  Receipt Date: 20230425
  Transmission Date: 20230721
  Serious: Yes (Death, Other)
  Sender: FDA-Public Use
  Company Number: MX-GLAXOSMITHKLINE-MX2023AMR058857

PATIENT

DRUGS (1)
  1. NIRAPARIB [Suspect]
     Active Substance: NIRAPARIB
     Indication: Ovarian cancer
     Dosage: UNK

REACTIONS (1)
  - Intestinal obstruction [Fatal]
